FAERS Safety Report 18784558 (Version 1)
Quarter: 2021Q1

REPORT INFORMATION
  Report Type: Other
  Country: US (occurrence: US)
  Receive Date: 20210125
  Receipt Date: 20210125
  Transmission Date: 20210419
  Serious: Yes (Other)
  Sender: FDA-Public Use
  Company Number: US-ROCHE-2506333

PATIENT
  Sex: Female

DRUGS (1)
  1. RITUXIMAB. [Suspect]
     Active Substance: RITUXIMAB
     Indication: EXTRANODAL MARGINAL ZONE B-CELL LYMPHOMA (MALT TYPE)
     Dosage: EVERY WEEK FOR A TOTAL OF EIGHT DOSES.?AFTER HER INITIAL RITUXIMAB DOSING, SHE WAS MAINTAINED ON QUA
     Route: 041

REACTIONS (1)
  - Bronchopulmonary aspergillosis [Unknown]
